FAERS Safety Report 6428037-1 (Version None)
Quarter: 2009Q4

REPORT INFORMATION
  Report Type: 
  Country: None (occurrence: None)
  Receive Date: 20091105
  Receipt Date: 20091030
  Transmission Date: 20100525
  Serious: Yes (Death, Hospitalization)
  Sender: FDA-Public Use
  Company Number: US-KINGPHARMUSA00001-K200901373

PATIENT
  Sex: Female

DRUGS (1)
  1. THROMBIN NOS [Suspect]
     Indication: PANCREATECTOMY
     Dosage: UNK
     Route: 061
     Dates: start: 20091001, end: 20091001

REACTIONS (3)
  - COAGULOPATHY [None]
  - DEATH [None]
  - POST PROCEDURAL HAEMORRHAGE [None]
